FAERS Safety Report 19653421 (Version 2)
Quarter: 2021Q3

REPORT INFORMATION
  Report Type: Report from Study
  Country: US (occurrence: US)
  Receive Date: 20210803
  Receipt Date: 20210816
  Transmission Date: 20211014
  Serious: No
  Sender: FDA-Public Use
  Company Number: NVSC2021US175147

PATIENT
  Sex: Female

DRUGS (3)
  1. XOLAIR [Suspect]
     Active Substance: OMALIZUMAB
     Indication: PRODUCT USED FOR UNKNOWN INDICATION
     Dosage: UNK
     Route: 065
  2. PREDNISONE. [Suspect]
     Active Substance: PREDNISONE
     Indication: PRODUCT USED FOR UNKNOWN INDICATION
     Dosage: THE PATIENT WENT FROM ^40 MG TO 10 MG [OF PREDNISONE] ON A 16 DAY TAPER
     Route: 065
  3. PREDNISONE. [Suspect]
     Active Substance: PREDNISONE
     Dosage: THE PATIENT WENT FROM ^40 MG TO 10 MG [OF PREDNISONE] ON A 16 DAY TAPER
     Route: 065

REACTIONS (1)
  - Paraesthesia [Recovered/Resolved]
